FAERS Safety Report 10327254 (Version 2)
Quarter: 2014Q3

REPORT INFORMATION
  Report Type: Spontaneous
  Country: GB (occurrence: GB)
  Receive Date: 20140720
  Receipt Date: 20140720
  Transmission Date: 20150326
  Serious: Yes (Other)
  Sender: FDA-Public Use
  Company Number: GB-AMGEN-GBRSP2014046343

PATIENT
  Age: 52 Year
  Sex: Female

DRUGS (7)
  1. HEPARIN [Concomitant]
     Active Substance: HEPARIN SODIUM
  2. LANSOPRAZOLE. [Concomitant]
     Active Substance: LANSOPRAZOLE
     Dosage: 30 MG, QD
     Route: 048
  3. DURAGESIC [Concomitant]
     Active Substance: FENTANYL
     Dosage: 50 (3/7), UNK
  4. ARANESP [Suspect]
     Active Substance: DARBEPOETIN ALFA
     Indication: NEPHROGENIC ANAEMIA
     Dosage: 40 MUG, UNK
     Route: 065
     Dates: start: 20110913, end: 20140625
  5. RAMIPRIL. [Concomitant]
     Active Substance: RAMIPRIL
     Dosage: 10 MG, QD
     Route: 048
  6. AMLODIPIN                          /00972401/ [Concomitant]
     Active Substance: AMLODIPINE BESYLATE
     Dosage: 10 MG, QD
     Route: 048
  7. CALCIDOL                           /00318501/ [Concomitant]
     Dosage: 0.5 UNK, QD
     Route: 048

REACTIONS (9)
  - Chronic fatigue syndrome [Unknown]
  - Injection site vesicles [Recovered/Resolved]
  - Post viral fatigue syndrome [Unknown]
  - Drug hypersensitivity [Unknown]
  - Injection site mass [Unknown]
  - Haemorrhage [Unknown]
  - Injection site warmth [Unknown]
  - Injection site rash [Unknown]
  - Injection site pruritus [Unknown]

NARRATIVE: CASE EVENT DATE: 201405
